FAERS Safety Report 21854647 (Version 1)
Quarter: 2023Q1

REPORT INFORMATION
  Report Type: Spontaneous
  Country: US (occurrence: US)
  Receive Date: 20230112
  Receipt Date: 20230112
  Transmission Date: 20230418
  Serious: No
  Sender: FDA-Public Use
  Company Number: US-PERRIGO-22US001156

PATIENT
  Age: 65 Year
  Sex: Female
  Weight: 55.782 kg

DRUGS (1)
  1. IBUPROFEN [Suspect]
     Active Substance: IBUPROFEN
     Indication: Arthralgia
     Dosage: 400 MG, SINGLE
     Route: 048
     Dates: start: 20220121, end: 20220121

REACTIONS (3)
  - Oral mucosal eruption [Not Recovered/Not Resolved]
  - Cheilitis [Not Recovered/Not Resolved]
  - Hypersensitivity [Not Recovered/Not Resolved]

NARRATIVE: CASE EVENT DATE: 20220121
